FAERS Safety Report 8262352-4 (Version None)
Quarter: 2012Q1

REPORT INFORMATION
  Report Type: 
  Country: None (occurrence: None)
  Receive Date: 20120327
  Receipt Date: 20090512
  Transmission Date: 20120608
  Serious: Yes (Other)
  Sender: FDA-Public Use
  Company Number: PHEH2009US04371

PATIENT
  Age: 73 Year
  Sex: Male
  Weight: 69.4 kg

DRUGS (1)
  1. GLEEVEC [Suspect]
     Indication: GASTROINTESTINAL STROMAL TUMOUR
     Dosage: 800 MG, QD, ORAL
     Route: 048
     Dates: start: 20030516, end: 20090401

REACTIONS (3)
  - GASTROINTESTINAL STROMAL TUMOUR [None]
  - DRUG INEFFECTIVE [None]
  - NEOPLASM MALIGNANT [None]
